FAERS Safety Report 7690090-5 (Version None)
Quarter: 2011Q3

REPORT INFORMATION
  Report Type: 
  Country: None (occurrence: None)
  Receive Date: 20110811
  Receipt Date: 20110801
  Transmission Date: 20111222
  Serious: Yes (Death)
  Sender: FDA-Public Use
  Company Number: 2011146372

PATIENT
  Age: 83 Year
  Sex: Female

DRUGS (2)
  1. FRAGMIN [Suspect]
     Indication: THROMBOSIS PROPHYLAXIS
     Dosage: 5000 IU, 1X/DAY, SUBCUTANEOUS ; 5000 IU, 2X/DAY
     Route: 058
     Dates: start: 20110517
  2. FRAGMIN [Suspect]
     Indication: THROMBOSIS PROPHYLAXIS
     Dosage: 5000 IU, 1X/DAY, SUBCUTANEOUS ; 5000 IU, 2X/DAY
     Route: 058
     Dates: start: 20110513, end: 20110517

REACTIONS (2)
  - PHLEBITIS [None]
  - PULMONARY EMBOLISM [None]
